FAERS Safety Report 9641524 (Version 3)
Quarter: 2013Q4

REPORT INFORMATION
  Report Type: Spontaneous
  Country: US (occurrence: US)
  Receive Date: 20131023
  Receipt Date: 20131219
  Transmission Date: 20140711
  Serious: Yes (Other)
  Sender: FDA-Public Use
  Company Number: US-RB-059129-13

PATIENT
  Age: 45 Year
  Sex: Male

DRUGS (14)
  1. CLEARASIL ULTRA RAPID ACTION DAILY FACE WASH [Suspect]
     Indication: PRODUCT USED FOR UNKNOWN INDICATION
     Dosage: AMOUNT USED: ENOUGH TO WASH FACE
     Route: 061
     Dates: start: 20130819
  2. VITAMIN D3 [Concomitant]
     Indication: PRODUCT USED FOR UNKNOWN INDICATION
     Dosage: 2,000 UNIT CAPSULE, I CAPSULE BY MOUTH DAILY.
     Route: 048
     Dates: start: 20120918
  3. CELEXA [Concomitant]
     Indication: PRODUCT USED FOR UNKNOWN INDICATION
     Dosage: I TABLET BY MOUTH DAILY
     Route: 048
     Dates: start: 20130909
  4. DEXTROAMPHETAMINE [Concomitant]
     Dosage: 3 TIMES DAILY AFTER MEALS
     Route: 048
  5. DEXTROAMPHETAMINE [Concomitant]
     Indication: ATTENTION DEFICIT/HYPERACTIVITY DISORDER
     Route: 048
     Dates: start: 20130909
  6. ATARAX [Concomitant]
     Indication: PRURITUS
     Dosage: 1 TABLET BY MOUTH NIGHTLY AS NEEDED
     Route: 048
     Dates: start: 20130827
  7. ATIVAN [Concomitant]
     Indication: PRODUCT USED FOR UNKNOWN INDICATION
     Dosage: 1 TABLET BY MOUTH 3 TIMES DAILY AS NEEDED
     Route: 048
     Dates: start: 20130909
  8. NAPROSYN [Concomitant]
     Indication: PRODUCT USED FOR UNKNOWN INDICATION
     Dosage: TAKE WITH FOOD
     Route: 048
     Dates: start: 20130827
  9. PRILOSEC [Concomitant]
     Indication: PRODUCT USED FOR UNKNOWN INDICATION
     Route: 048
     Dates: start: 20130909
  10. ZANTAC [Concomitant]
     Indication: PRODUCT USED FOR UNKNOWN INDICATION
     Dosage: I TABLET BY MOUTH NIGHTLY
     Route: 048
     Dates: start: 20130909
  11. LAMISIL [Concomitant]
     Indication: PRODUCT USED FOR UNKNOWN INDICATION
     Dosage: APPLIED TOPICALLY NIGHTLY
     Route: 061
     Dates: start: 20120524
  12. WELLBUTRIN [Concomitant]
     Indication: MAJOR DEPRESSION
     Route: 048
  13. WELLBUTRIN [Concomitant]
     Indication: MAJOR DEPRESSION
     Route: 048
  14. KLONOPIN [Concomitant]
     Indication: PRODUCT USED FOR UNKNOWN INDICATION
     Route: 048

REACTIONS (26)
  - Depression [Not Recovered/Not Resolved]
  - Major depression [Unknown]
  - Syncope [Unknown]
  - Post-traumatic stress disorder [Unknown]
  - Dermatitis contact [Unknown]
  - Fatigue [Not Recovered/Not Resolved]
  - Rash [Unknown]
  - Scar [Not Recovered/Not Resolved]
  - Face oedema [Unknown]
  - Eyelid oedema [Unknown]
  - Abasia [Unknown]
  - Anxiety [Unknown]
  - Stress [Unknown]
  - Chemical injury [Not Recovered/Not Resolved]
  - Rash erythematous [Unknown]
  - Burning sensation [Recovered/Resolved]
  - Pain [Unknown]
  - Pruritus [Recovered/Resolved]
  - Insomnia [Not Recovered/Not Resolved]
  - Nightmare [Unknown]
  - Skin disorder [Not Recovered/Not Resolved]
  - Skin exfoliation [Unknown]
  - Pyrexia [Unknown]
  - Dark circles under eyes [Unknown]
  - Fatigue [Unknown]
  - Drug hypersensitivity [Not Recovered/Not Resolved]
